FAERS Safety Report 4439774-2 (Version None)
Quarter: 2004Q3

REPORT INFORMATION
  Report Type: 
  Country: None (occurrence: None)
  Receive Date: 20040831
  Receipt Date: 20040819
  Transmission Date: 20050211
  Serious: Yes (Hospitalization)
  Sender: FDA-Public Use
  Company Number: 2004AP04376

PATIENT
  Age: 21 Year
  Sex: Female

DRUGS (5)
  1. OMEPRAL [Suspect]
     Indication: PROPHYLAXIS AGAINST GASTROINTESTINAL ULCER
     Dosage: 10 MG DAILY PO
     Route: 048
     Dates: start: 20040625
  2. BAKTAR [Suspect]
     Dosage: 1 DF DAILY PO
     Route: 048
     Dates: start: 20040707
  3. BLOPRESS [Suspect]
     Dosage: 2 MG DAILY PO
     Route: 048
     Dates: start: 20040802
  4. 8-HOUR BAYER [Concomitant]
  5. MAGNESIUM OXIDE [Concomitant]

REACTIONS (1)
  - GRANULOCYTOPENIA [None]
